FAERS Safety Report 6443220-7 (Version None)
Quarter: 2009Q4

REPORT INFORMATION
  Report Type: 
  Country: None (occurrence: None)
  Receive Date: 20091117
  Receipt Date: 20091110
  Transmission Date: 20100525
  Serious: Yes (Death, Other)
  Sender: FDA-Public Use
  Company Number: US-AMGEN-US366079

PATIENT
  Sex: Female

DRUGS (2)
  1. NPLATE [Suspect]
     Indication: IDIOPATHIC THROMBOCYTOPENIC PURPURA
     Route: 058
     Dates: start: 20081212, end: 20090501
  2. IMMUNOGLOBULINS [Concomitant]
     Route: 042
     Dates: start: 20060417

REACTIONS (2)
  - DEATH [None]
  - DRUG INEFFECTIVE [None]
